FAERS Safety Report 8460741-6 (Version None)
Quarter: 2012Q2

REPORT INFORMATION
  Report Type: 
  Country: None (occurrence: None)
  Receive Date: 20120622
  Receipt Date: 20120613
  Transmission Date: 20120825
  Serious: Yes (Other)
  Sender: FDA-Public Use
  Company Number: US-ELI_LILLY_AND_COMPANY-US201206004711

PATIENT
  Sex: Male
  Weight: 129.25 kg

DRUGS (1)
  1. BYETTA [Suspect]
     Indication: TYPE 2 DIABETES MELLITUS
     Dosage: 10 UG, BID
     Route: 058

REACTIONS (4)
  - NIPPLE PAIN [None]
  - NIPPLE SWELLING [None]
  - THELITIS [None]
  - RENAL CANCER [None]
